FAERS Safety Report 4349074-7 (Version None)
Quarter: 2004Q2

REPORT INFORMATION
  Report Type: 
  Country: None (occurrence: None)
  Receive Date: 20040428
  Receipt Date: 20040416
  Transmission Date: 20050107
  Serious: Yes (Other)
  Sender: FDA-Public Use
  Company Number: PHRM2004FR01592

PATIENT
  Sex: Female

DRUGS (8)
  1. TAREG [Suspect]
     Indication: HYPERTENSION
     Dosage: 160 MG, QD
     Route: 048
  2. AMAREL [Suspect]
     Dosage: 4 MG, DAILY
     Route: 048
  3. KARDEGIC [Suspect]
     Dosage: 75 MG, DAILY
     Route: 048
  4. ALDACTONE [Concomitant]
  5. TAHOR [Concomitant]
  6. DEROXAT [Concomitant]
  7. LEXOMIL [Concomitant]
  8. CLIMASTON [Concomitant]

REACTIONS (3)
  - ANAEMIA MACROCYTIC [None]
  - DYSPNOEA [None]
  - HAEMOGLOBIN DECREASED [None]
